FAERS Safety Report 19909939 (Version 1)
Quarter: 2021Q4

REPORT INFORMATION
  Report Type: Report from Study
  Country: US (occurrence: US)
  Receive Date: 20211003
  Receipt Date: 20211003
  Transmission Date: 20220304
  Serious: Yes (Other)
  Sender: FDA-Public Use
  Company Number: US-NOVARTISPH-NVSC2021US220510

PATIENT
  Age: 59 Year
  Sex: Male
  Weight: 154.1 kg

DRUGS (10)
  1. METOPROLOL TARTRATE [Suspect]
     Active Substance: METOPROLOL TARTRATE
     Indication: Atrial fibrillation
     Dosage: 5 MG, PRN
     Route: 042
     Dates: start: 20180712, end: 20180722
  2. METOPROLOL TARTRATE [Suspect]
     Active Substance: METOPROLOL TARTRATE
     Dosage: 50 MG, Q8H
     Route: 065
     Dates: start: 20180728
  3. CYTARABINE [Suspect]
     Active Substance: CYTARABINE
     Indication: Acute myeloid leukaemia
     Dosage: 170 MG, QD
     Route: 041
     Dates: start: 20180627, end: 20180703
  4. SOTALOL HYDROCHLORIDE [Suspect]
     Active Substance: SOTALOL HYDROCHLORIDE
     Indication: Atrial fibrillation
     Dosage: 80 MG, Q12H (2X/DAY)
     Route: 048
     Dates: start: 20180712
  5. SOTALOL HYDROCHLORIDE [Suspect]
     Active Substance: SOTALOL HYDROCHLORIDE
     Dosage: 80 MG, Q12H (2X/DAY)
     Route: 048
     Dates: start: 20180720
  6. GLASDEGIB [Suspect]
     Active Substance: GLASDEGIB
     Indication: Acute myeloid leukaemia
     Dosage: 100 MG, QD
     Route: 048
     Dates: start: 20180627, end: 20180710
  7. GLASDEGIB [Suspect]
     Active Substance: GLASDEGIB
     Dosage: 75 UNK
     Route: 065
     Dates: start: 20180719
  8. DAUNORUBICIN [Suspect]
     Active Substance: DAUNORUBICIN
     Indication: Acute myeloid leukaemia
     Dosage: 102 MG, QD
     Route: 042
     Dates: start: 20180627, end: 20180629
  9. VANCOCIN [Concomitant]
     Active Substance: VANCOMYCIN HYDROCHLORIDE
     Indication: Product used for unknown indication
     Dosage: UNK (AS ANTIBIOTIC)
     Route: 065
     Dates: start: 20180702, end: 20180720
  10. FLAGYL [Concomitant]
     Active Substance: METRONIDAZOLE\METRONIDAZOLE HYDROCHLORIDE
     Indication: Product used for unknown indication
     Dosage: UNK (AS ANTIBIOTIC)
     Route: 065
     Dates: start: 20180706, end: 20180709

REACTIONS (2)
  - Electrocardiogram QT prolonged [Recovered/Resolved]
  - Electrocardiogram QT prolonged [Recovered/Resolved]

NARRATIVE: CASE EVENT DATE: 20180716
